FAERS Safety Report 9960023 (Version 1)
Quarter: 2014Q1

REPORT INFORMATION
  Report Type: Report from Study
  Country: US (occurrence: US)
  Receive Date: 20140305
  Receipt Date: 20140305
  Transmission Date: 20141002
  Serious: No
  Sender: FDA-Public Use
  Company Number: US-ABBVIE-13P-163-1106528-00

PATIENT
  Age: 72 Year
  Sex: Male

DRUGS (16)
  1. HUMIRA [Suspect]
     Indication: COLITIS ULCERATIVE
     Dates: start: 20130610, end: 20130610
  2. HUMIRA [Suspect]
     Dates: start: 20130624, end: 20130624
  3. HUMIRA [Suspect]
  4. LIBRAX [Suspect]
     Indication: PRODUCT USED FOR UNKNOWN INDICATION
     Dosage: 1 AT LUNCH, DINNER AND AT BEDTIME
     Dates: end: 201306
  5. ASACOL HD [Concomitant]
     Indication: PRODUCT USED FOR UNKNOWN INDICATION
  6. CANASA [Concomitant]
     Indication: PRODUCT USED FOR UNKNOWN INDICATION
     Dosage: 1 AT NIGHT
  7. UCERIS [Concomitant]
     Indication: COLITIS ULCERATIVE
     Dosage: 9 MG DAILY
  8. VIMOVO [Concomitant]
     Indication: OSTEOARTHRITIS
  9. AMARYL [Concomitant]
     Indication: DIABETES MELLITUS
     Dosage: 2 MG DAILY
  10. LASIX [Concomitant]
     Indication: FLUID RETENTION
     Dosage: 20 MG DAILY
  11. FLOMAX [Concomitant]
     Indication: PROSTATOMEGALY
     Dosage: 4 MG DAILY
  12. PROSCAR [Concomitant]
     Indication: PROSTATOMEGALY
     Dosage: 5 MG DAILY
  13. PROSCAR [Concomitant]
     Indication: ABNORMAL SENSATION IN EYE
     Dosage: 1 DROP IN RIGHT EYE
  14. ASPIRIN [Concomitant]
     Indication: PROPHYLAXIS
     Dosage: 81 MG DAILY
  15. UNKNOWN MEDICATION [Concomitant]
     Indication: COLITIS ULCERATIVE
     Dosage: 9MG DAILY
  16. UNKNOWN MEDICATION [Concomitant]
     Indication: OSTEOARTHRITIS

REACTIONS (5)
  - Faeces discoloured [Not Recovered/Not Resolved]
  - Drug ineffective [Not Recovered/Not Resolved]
  - Injection site pain [Not Recovered/Not Resolved]
  - Injection site haemorrhage [Not Recovered/Not Resolved]
  - Diarrhoea [Unknown]
